FAERS Safety Report 18584080 (Version 1)
Quarter: 2020Q4

REPORT INFORMATION
  Report Type: Spontaneous
  Country: DE (occurrence: DE)
  Receive Date: 20201207
  Receipt Date: 20201207
  Transmission Date: 20210114
  Serious: Yes (Other)
  Sender: FDA-Public Use
  Company Number: DE-LUPIN PHARMACEUTICALS INC.-2020-09819

PATIENT
  Sex: Female

DRUGS (1)
  1. TRIAMCINOLONE [Suspect]
     Active Substance: TRIAMCINOLONE
     Indication: RHINITIS ALLERGIC
     Dosage: INJECTION OF CRYSTALLINE SUSPENSION DEPOT IN THE AREA OF THE UPPER RIGHT ARM
     Route: 030
     Dates: start: 2017

REACTIONS (4)
  - Mental disorder [Unknown]
  - Product administration error [Unknown]
  - Injection site atrophy [Unknown]
  - Wrong technique in product usage process [Unknown]
